FAERS Safety Report 20728485 (Version 1)
Quarter: 2022Q2

REPORT INFORMATION
  Report Type: Spontaneous
  Country: US (occurrence: US)
  Receive Date: 20220420
  Receipt Date: 20220420
  Transmission Date: 20220720
  Serious: Yes (Hospitalization, Other)
  Sender: FDA-Public Use
  Company Number: US-Y-MABS THERAPEUTICS, INC.-SPO2022-US-000619

PATIENT

DRUGS (19)
  1. DANYELZA [Suspect]
     Active Substance: NAXITAMAB-GQGK
     Indication: Neuroblastoma recurrent
     Dosage: CYCLE 1, DOSE 1
     Route: 042
     Dates: start: 20211201
  2. DANYELZA [Suspect]
     Active Substance: NAXITAMAB-GQGK
     Dosage: CYCLE 1, DOSE 2
     Route: 042
     Dates: start: 20211203
  3. DANYELZA [Suspect]
     Active Substance: NAXITAMAB-GQGK
     Dosage: CYCLE 1, DOSE 3
     Route: 042
     Dates: start: 20211206
  4. IRINOTECAN [Concomitant]
     Active Substance: IRINOTECAN
     Dosage: 40 MG
     Dates: start: 20211201, end: 20211201
  5. IRINOTECAN [Concomitant]
     Active Substance: IRINOTECAN
     Dosage: 40 MG
     Dates: start: 20211203, end: 20211203
  6. TEMOZOLOMIDE [Concomitant]
     Active Substance: TEMOZOLOMIDE
     Dosage: 80 MG
     Dates: start: 20211201, end: 20211201
  7. TEMOZOLOMIDE [Concomitant]
     Active Substance: TEMOZOLOMIDE
     Dosage: 80 MG
     Dates: start: 20211203, end: 20211203
  8. OXYCODONE [Concomitant]
     Active Substance: OXYCODONE
     Indication: Premedication
     Dosage: 2 MG
     Dates: start: 20211201, end: 20211201
  9. OXYCODONE [Concomitant]
     Active Substance: OXYCODONE
     Dosage: 1 MG
     Dates: start: 20211203, end: 20211203
  10. OXYCODONE [Concomitant]
     Active Substance: OXYCODONE
     Dosage: 2 MG
     Dates: start: 20211203, end: 20211203
  11. OXYCODONE [Concomitant]
     Active Substance: OXYCODONE
     Dosage: 2 MG
     Dates: start: 20211206, end: 20211206
  12. HYDROMORPHONE [Concomitant]
     Active Substance: HYDROMORPHONE
     Indication: Premedication
  13. KETOROLAC [Concomitant]
     Active Substance: KETOROLAC TROMETHAMINE
     Indication: Premedication
  14. KETAMINE [Concomitant]
     Active Substance: KETAMINE
     Indication: Premedication
  15. FAMOTIDINE [Concomitant]
     Active Substance: FAMOTIDINE
     Indication: Premedication
  16. CETIRIZINE [Concomitant]
     Active Substance: CETIRIZINE HYDROCHLORIDE
     Indication: Premedication
  17. DIPHENHYDRAMINE [Concomitant]
     Active Substance: DIPHENHYDRAMINE
     Indication: Premedication
  18. GABAPENTIN [Concomitant]
     Active Substance: GABAPENTIN
     Indication: Premedication
  19. MONTELUKAST [Concomitant]
     Active Substance: MONTELUKAST SODIUM
     Indication: Premedication

REACTIONS (2)
  - Hypertension [Recovered/Resolved]
  - Hypertension [Recovered/Resolved]

NARRATIVE: CASE EVENT DATE: 20211206
